FAERS Safety Report 4334014-7 (Version None)
Quarter: 2004Q1

REPORT INFORMATION
  Report Type: 
  Country: None (occurrence: None)
  Receive Date: 20040329
  Receipt Date: 20040114
  Transmission Date: 20041129
  Serious: No
  Sender: FDA-Public Use
  Company Number: 04P-163-0247051-00

PATIENT
  Age: 45 Year
  Sex: Female

DRUGS (7)
  1. HUMIRA [Suspect]
     Indication: RHEUMATOID ARTHRITIS
     Dosage: 40 MG, 1 IN 2 WK, SUBCUTANEOUS
     Route: 058
     Dates: start: 20040102
  2. PREDNISONE [Concomitant]
  3. AZATHIOPRINE [Concomitant]
  4. SERTRALINE HYDROCHLORIDE [Concomitant]
  5. LEVOTHYROXINE SODIUM [Concomitant]
  6. ESTRADIOL [Concomitant]
  7. ALENDRONATE SODIUM [Concomitant]

REACTIONS (6)
  - EYE PRURITUS [None]
  - EYELID OEDEMA [None]
  - HEAT RASH [None]
  - HYPERSENSITIVITY [None]
  - NASAL DISCOMFORT [None]
  - SINUS HEADACHE [None]
